FAERS Safety Report 19844920 (Version 2)
Quarter: 2021Q3

REPORT INFORMATION
  Report Type: Spontaneous
  Country: DE (occurrence: DE)
  Receive Date: 20210916
  Receipt Date: 20210927
  Transmission Date: 20211014
  Serious: Yes (Death, Hospitalization, Other)
  Sender: FDA-Public Use
  Company Number: DE-PFIZER INC-202101197011

PATIENT
  Age: 63 Year
  Sex: Male
  Weight: 71 kg

DRUGS (9)
  1. RISPERIDONE. [Suspect]
     Active Substance: RISPERIDONE
     Dosage: 0.5 MILLIGRAM, BID
     Route: 065
  2. ORNITHINE [Concomitant]
     Active Substance: ORNITHINE
     Dosage: 3000 MILLIGRAM, BID
  3. VITAMIN B12 [Concomitant]
     Active Substance: CYANOCOBALAMIN
     Dosage: 2000 MILLIGRAM, QD
     Route: 065
  4. LACTULOSE. [Concomitant]
     Active Substance: LACTULOSE
     Dosage: 667 GRAM, BID
  5. SPIRONOLACTON [Suspect]
     Active Substance: SPIRONOLACTONE
     Dosage: 50 MILLIGRAM, QD
     Route: 065
  6. TORASEMID [Suspect]
     Active Substance: TORSEMIDE
     Dosage: 20 MILLIGRAM, QD
     Route: 065
  7. PANTOPRAZOLE [Suspect]
     Active Substance: PANTOPRAZOLE
     Dosage: 40 MILLIGRAM, BID
     Route: 065
  8. METAMIZOL [Concomitant]
     Active Substance: METAMIZOLE SODIUM
     Dosage: UNK, TID
  9. CARVEDILOL. [Concomitant]
     Active Substance: CARVEDILOL
     Dosage: 3.125 MILLIGRAM

REACTIONS (12)
  - Death [Fatal]
  - Abdominal distension [Unknown]
  - Acute abdomen [Unknown]
  - Hyperkalaemia [Unknown]
  - Condition aggravated [Unknown]
  - Hyponatraemia [Unknown]
  - Systemic infection [Unknown]
  - Bradycardia [Unknown]
  - Anaemia [Unknown]
  - Hypotension [Unknown]
  - General physical health deterioration [Unknown]
  - Oedema peripheral [Unknown]
